FAERS Safety Report 25460058 (Version 1)
Quarter: 2025Q2

REPORT INFORMATION
  Report Type: Spontaneous
  Country: US (occurrence: US)
  Receive Date: 20250620
  Receipt Date: 20250620
  Transmission Date: 20250717
  Serious: No
  Sender: ELI LILLY AND COMPANY
  Company Number: US-ELI_LILLY_AND_COMPANY-US202506015606

PATIENT
  Age: 76 Year
  Sex: Female

DRUGS (4)
  1. BASAGLAR [Suspect]
     Active Substance: INSULIN GLARGINE
     Indication: Type 1 diabetes mellitus
     Route: 065
     Dates: start: 202201
  2. BASAGLAR [Suspect]
     Active Substance: INSULIN GLARGINE
     Indication: Type 1 diabetes mellitus
     Route: 065
     Dates: start: 202201
  3. BASAGLAR [Suspect]
     Active Substance: INSULIN GLARGINE
     Route: 065
     Dates: start: 202201
  4. HUMALOG JUNIOR KWIKPEN [Suspect]
     Active Substance: INSULIN LISPRO
     Indication: Type 1 diabetes mellitus
     Route: 065

REACTIONS (2)
  - Blood glucose increased [Unknown]
  - Blood glucose decreased [Unknown]
